FAERS Safety Report 19483969 (Version 3)
Quarter: 2021Q3

REPORT INFORMATION
  Report Type: Spontaneous
  Country: US (occurrence: US)
  Receive Date: 20210701
  Receipt Date: 20210714
  Transmission Date: 20211014
  Serious: Yes (Other)
  Sender: FDA-Public Use
  Company Number: US-ALKERMES INC.-ALK-2021-003302

PATIENT
  Age: 58 Year
  Sex: Male

DRUGS (4)
  1. OTHER THERAPEUTIC PRODUCTS [Concomitant]
     Active Substance: UNSPECIFIED INGREDIENT
     Indication: PRODUCT USED FOR UNKNOWN INDICATION
     Dosage: UNK
  2. VIVITROL [Suspect]
     Active Substance: NALTREXONE
     Indication: ALCOHOLISM
     Dosage: 380 MILLIGRAM, QMO
     Route: 030
     Dates: start: 202105, end: 202105
  3. NALTREXONE [Concomitant]
     Active Substance: NALTREXONE
     Indication: ALCOHOLISM
     Dosage: 2 DOSAGE FORM, QD
     Route: 048
  4. OTHER THERAPEUTIC PRODUCTS [Concomitant]
     Active Substance: UNSPECIFIED INGREDIENT
     Dosage: UNK

REACTIONS (7)
  - Pain [Recovered/Resolved]
  - Head injury [Unknown]
  - Fall [Recovered/Resolved]
  - Alcoholism [Unknown]
  - Eye injury [Unknown]
  - Surgery [Recovered/Resolved]
  - Alcohol poisoning [Unknown]

NARRATIVE: CASE EVENT DATE: 202106
